FAERS Safety Report 10393099 (Version 1)
Quarter: 2014Q3

REPORT INFORMATION
  Report Type: Spontaneous
  Country: GB (occurrence: GB)
  Receive Date: 20140819
  Receipt Date: 20140819
  Transmission Date: 20150326
  Serious: Yes (Congenital Anomaly, Other)
  Sender: FDA-Public Use
  Company Number: GB-MYLANLABS-2014M1001397

PATIENT

DRUGS (2)
  1. CARBAMAZEPINE. [Concomitant]
     Active Substance: CARBAMAZEPINE
     Indication: EPILEPSY
     Dosage: 600MG DAILY
     Route: 064
  2. SODIUM VALPROATE [Suspect]
     Active Substance: VALPROATE SODIUM
     Indication: EPILEPSY
     Dosage: 1500MG DAILY
     Route: 064

REACTIONS (7)
  - Hearing impaired [Unknown]
  - Foetal exposure during pregnancy [Not Recovered/Not Resolved]
  - Failure to thrive [Unknown]
  - Hypospadias [Not Recovered/Not Resolved]
  - Motor developmental delay [Unknown]
  - Coloboma [Not Recovered/Not Resolved]
  - Foetal anticonvulsant syndrome [Not Recovered/Not Resolved]
